FAERS Safety Report 6145770-X (Version None)
Quarter: 2009Q2

REPORT INFORMATION
  Report Type: 
  Country: None (occurrence: None)
  Receive Date: 20090403
  Receipt Date: 20090326
  Transmission Date: 20091009
  Serious: Yes (Other)
  Sender: FDA-Public Use
  Company Number: PAR_02905_2009

PATIENT
  Age: 38 Year
  Sex: Male

DRUGS (1)
  1. HYDROXYUREA [Suspect]
     Indication: CHRONIC MYELOID LEUKAEMIA
     Dosage: (2.5 G)

REACTIONS (6)
  - ALOPECIA [None]
  - HYPERTRICHOSIS [None]
  - KERATOSIS PILARIS [None]
  - SKIN ATROPHY [None]
  - SKIN STRIAE [None]
  - SPIDER NAEVUS [None]
